FAERS Safety Report 22265212 (Version 6)
Quarter: 2023Q4

REPORT INFORMATION
  Report Type: Spontaneous
  Country: US (occurrence: US)
  Receive Date: 20230428
  Receipt Date: 20231218
  Transmission Date: 20240110
  Serious: Yes (Other)
  Sender: FDA-Public Use
  Company Number: US-PFIZER INC-PV202300076094

PATIENT
  Age: 75 Year
  Sex: Male

DRUGS (1)
  1. INLYTA [Suspect]
     Active Substance: AXITINIB
     Dosage: 5 MG

REACTIONS (6)
  - Pneumonia [Unknown]
  - Eye operation [Unknown]
  - Dysphonia [Unknown]
  - Oral pain [Unknown]
  - Micturition urgency [Unknown]
  - Oral pain [Unknown]
